FAERS Safety Report 8115560-7 (Version None)
Quarter: 2012Q1

REPORT INFORMATION
  Report Type: 
  Country: None (occurrence: None)
  Receive Date: 20120206
  Receipt Date: 20120131
  Transmission Date: 20120608
  Serious: Yes (Hospitalization, Other)
  Sender: FDA-Public Use
  Company Number: US-SANOFI-AVENTIS-2012SA006801

PATIENT
  Age: 57 Year
  Sex: Female

DRUGS (4)
  1. REMICADE [Concomitant]
  2. SOLOSTAR [Suspect]
     Dates: start: 20090101
  3. HUMALOG [Concomitant]
  4. LANTUS [Suspect]
     Dosage: DOSE:14 UNIT(S)
     Route: 058

REACTIONS (2)
  - UPPER LIMB FRACTURE [None]
  - LOCALISED INFECTION [None]
